FAERS Safety Report 9464761 (Version 4)
Quarter: 2014Q1

REPORT INFORMATION
  Report Type: Spontaneous
  Country: US (occurrence: US)
  Receive Date: 20130819
  Receipt Date: 20140115
  Transmission Date: 20141002
  Serious: No
  Sender: FDA-Public Use
  Company Number: US-PFIZER INC-2013236782

PATIENT
  Age: 55 Year
  Sex: Male

DRUGS (4)
  1. SUTENT [Suspect]
     Indication: NEOPLASM MALIGNANT
     Dosage: 37.5 MG, 1X/DAY (12.5 X3 TABLETS)
     Route: 048
     Dates: start: 20110903
  2. SUTENT [Suspect]
     Dosage: 12.5 MG, UNK
     Dates: start: 20130119
  3. LOSARTAN [Concomitant]
     Dosage: UNK
  4. NORVASC [Concomitant]
     Dosage: UNK

REACTIONS (3)
  - Gingival pain [Unknown]
  - Nasal discomfort [Unknown]
  - Oral pain [Unknown]
